FAERS Safety Report 8491953-3 (Version None)
Quarter: 2012Q2

REPORT INFORMATION
  Report Type: 
  Country: None (occurrence: None)
  Receive Date: 20120402
  Receipt Date: 20111005
  Transmission Date: 20120825
  Serious: Yes (Other)
  Sender: FDA-Public Use
  Company Number: 303749USA

PATIENT
  Sex: Female

DRUGS (1)
  1. ALENDRONATE SODIUM [Suspect]
     Dosage: (70 MG)

REACTIONS (5)
  - LIP SWELLING [None]
  - PARAESTHESIA ORAL [None]
  - POLLAKIURIA [None]
  - HYPOAESTHESIA [None]
  - HYPOAESTHESIA ORAL [None]
